FAERS Safety Report 5009780-8 (Version None)
Quarter: 2006Q2

REPORT INFORMATION
  Report Type: 
  Country: None (occurrence: None)
  Receive Date: 20060524
  Receipt Date: 20060411
  Transmission Date: 20061013
  Serious: Yes (Hospitalization, Disabling)
  Sender: FDA-Public Use
  Company Number: GB-ROCHE-444178

PATIENT
  Age: 27 Year
  Sex: Female
  Weight: 97 kg

DRUGS (1)
  1. LARIAM [Suspect]
     Route: 048
     Dates: start: 20060210, end: 20060224

REACTIONS (6)
  - ANXIETY [None]
  - CONFUSIONAL STATE [None]
  - DEPRESSION [None]
  - DISORIENTATION [None]
  - HYPERSENSITIVITY [None]
  - INCOHERENT [None]
